FAERS Safety Report 21069024 (Version 1)
Quarter: 2022Q3

REPORT INFORMATION
  Report Type: Spontaneous
  Country: CN (occurrence: CN)
  Receive Date: 20220712
  Receipt Date: 20220712
  Transmission Date: 20221027
  Serious: Yes (Hospitalization)
  Sender: FDA-Public Use
  Company Number: CN-PFIZER INC-PV202200019233

PATIENT
  Age: 28 Year
  Sex: Female
  Weight: 62.5 kg

DRUGS (1)
  1. SERTRALINE HYDROCHLORIDE [Suspect]
     Active Substance: SERTRALINE HYDROCHLORIDE
     Indication: Panic disorder
     Dosage: 100 MG, 1X/DAY
     Route: 048
     Dates: start: 20220606, end: 20220613

REACTIONS (4)
  - Off label use [Unknown]
  - Diarrhoea [Recovering/Resolving]
  - Abdominal pain [Unknown]
  - Frequent bowel movements [Unknown]

NARRATIVE: CASE EVENT DATE: 20220606
